FAERS Safety Report 9502610 (Version 2)
Quarter: 2013Q3

REPORT INFORMATION
  Report Type: Spontaneous
  Country: ZA (occurrence: ZA)
  Receive Date: 20130906
  Receipt Date: 20130930
  Transmission Date: 20140515
  Serious: Yes (Hospitalization)
  Sender: FDA-Public Use
  Company Number: ZA-JNJFOC-20130901028

PATIENT
  Age: 67 Year
  Sex: Male

DRUGS (2)
  1. XARELTO 10 [Suspect]
     Indication: KNEE ARTHROPLASTY
     Route: 048
     Dates: start: 20130725, end: 20130805
  2. XARELTO 10 [Suspect]
     Indication: THROMBOSIS PROPHYLAXIS
     Route: 048
     Dates: start: 20130725, end: 20130805

REACTIONS (5)
  - Haematoma [Recovering/Resolving]
  - Pain [Unknown]
  - Swelling [Unknown]
  - Pain [Unknown]
  - Wound secretion [Unknown]
